FAERS Safety Report 6990251-4 (Version None)
Quarter: 2010Q3

REPORT INFORMATION
  Report Type: 
  Country: None (occurrence: None)
  Receive Date: 20100916
  Receipt Date: 20100511
  Transmission Date: 20110219
  Serious: Yes (Other)
  Sender: FDA-Public Use
  Company Number: US-PFIZER INC-2010060017

PATIENT

DRUGS (1)
  1. LYRICA [Suspect]
     Dosage: 50 MG, 3X/DAY
     Route: 048

REACTIONS (1)
  - CONVULSION [None]
